FAERS Safety Report 9264445 (Version 1)
Quarter: 2013Q2

REPORT INFORMATION
  Report Type: Spontaneous
  Country: US (occurrence: US)
  Receive Date: 20130501
  Receipt Date: 20130501
  Transmission Date: 20140414
  Serious: Yes (Hospitalization, Other)
  Sender: FDA-Public Use
  Company Number: US-B.I. PHARMACEUTICALS,INC./RIDGEFIELD-2013-BI-11826GD

PATIENT
  Age: 69 Year
  Sex: Male

DRUGS (6)
  1. PRADAXA [Suspect]
     Indication: ATRIAL FIBRILLATION
     Dosage: 150 MG
  2. BUDESONIDE/FORMOTEROL [Concomitant]
  3. SIMVASTATIN [Concomitant]
  4. METOPROLOL [Concomitant]
  5. METOLAZONE [Concomitant]
  6. FUROSEMIDE [Concomitant]

REACTIONS (7)
  - Subarachnoid haemorrhage [Unknown]
  - Headache [Unknown]
  - Confusional state [Recovered/Resolved]
  - Mental status changes [Recovered/Resolved]
  - Hyperhidrosis [Unknown]
  - Wound dehiscence [Unknown]
  - Cerebrospinal fluid leakage [Unknown]
